FAERS Safety Report 24146813 (Version 1)
Quarter: 2024Q3

REPORT INFORMATION
  Report Type: Spontaneous
  Country: US (occurrence: None)
  Receive Date: 20240726
  Receipt Date: 20240726
  Transmission Date: 20241017
  Serious: Yes (Other)
  Sender: Public
  Company Number: None

PATIENT
  Age: 54 Month
  Sex: Female
  Weight: 53.1 kg

DRUGS (9)
  1. AZELASTINE HYDROCHLORIDE [Suspect]
     Active Substance: AZELASTINE HYDROCHLORIDE
     Indication: Dry eye
     Dosage: TWICE A DAY OPHTHALMIC
     Route: 047
  2. TRAMADOL [Concomitant]
     Active Substance: TRAMADOL\TRAMADOL HYDROCHLORIDE
  3. OMEPRAZOLE [Concomitant]
     Active Substance: OMEPRAZOLE
  4. GABAPENTIN [Concomitant]
     Active Substance: GABAPENTIN
  5. CYCLOBENZAPRINE [Concomitant]
     Active Substance: CYCLOBENZAPRINE
  6. lid ocaine [Concomitant]
  7. Meta mucil [Concomitant]
  8. COLACE [Concomitant]
     Active Substance: DOCUSATE SODIUM
  9. BAYER ASPIRIN [Concomitant]
     Active Substance: ASPIRIN

REACTIONS (2)
  - Vision blurred [None]
  - Headache [None]

NARRATIVE: CASE EVENT DATE: 20240612
